FAERS Safety Report 14981348 (Version 1)
Quarter: 2018Q2

REPORT INFORMATION
  Report Type: Spontaneous
  Country: US (occurrence: US)
  Receive Date: 20180606
  Receipt Date: 20180606
  Transmission Date: 20180711
  Serious: No
  Sender: FDA-Public Use
  Company Number: US-AQUA PHARMACEUTICALS-2018AQU000114

PATIENT

DRUGS (2)
  1. CORDRAN [Suspect]
     Active Substance: FLURANDRENOLIDE
     Indication: SKIN EXFOLIATION
  2. CORDRAN [Suspect]
     Active Substance: FLURANDRENOLIDE
     Indication: SKIN EXFOLIATION
     Route: 061

REACTIONS (4)
  - Skin exfoliation [Unknown]
  - Acne [Unknown]
  - Incorrect drug administration duration [Unknown]
  - Drug ineffective [Unknown]
